FAERS Safety Report 6308636-8 (Version None)
Quarter: 2009Q3

REPORT INFORMATION
  Report Type: 
  Country: None (occurrence: None)
  Receive Date: 20090813
  Receipt Date: 20090806
  Transmission Date: 20100115
  Serious: Yes (Hospitalization)
  Sender: FDA-Public Use
  Company Number: DE-ABBOTT-09P-062-0589992-00

PATIENT
  Sex: Male
  Weight: 76 kg

DRUGS (1)
  1. NIASPAN [Suspect]
     Indication: ATHEROSCLEROSIS PROPHYLAXIS
     Route: 048
     Dates: start: 20070912

REACTIONS (3)
  - ATRIAL FIBRILLATION [None]
  - DIABETES MELLITUS [None]
  - VERTIGO [None]
